FAERS Safety Report 19482593 (Version 1)
Quarter: 2021Q3

REPORT INFORMATION
  Report Type: Spontaneous
  Country: FR (occurrence: FR)
  Receive Date: 20210701
  Receipt Date: 20210701
  Transmission Date: 20211014
  Serious: Yes (Life-Threatening, Hospitalization)
  Sender: FDA-Public Use
  Company Number: FR-TEVA-2021-FR-1926300

PATIENT
  Age: 53 Year
  Sex: Female
  Weight: 71 kg

DRUGS (5)
  1. DOXORUBICINE ACCORD 2 MG/ML, SOLUTION POUR PERFUSION [Suspect]
     Active Substance: DOXORUBICIN HYDROCHLORIDE
     Indication: FOLLICULAR LYMPHOMA STAGE III
     Dosage: 516 MG / 303MG / M ?6 CURES, 86 MG
     Route: 042
     Dates: start: 20210122, end: 20210510
  2. RITUXIMAB ((MAMMIFERE/HAMSTER/CELLULES CHO)) [Suspect]
     Active Substance: RITUXIMAB
     Indication: FOLLICULAR LYMPHOMA STAGE III
     Dosage: 645 MG
     Route: 042
     Dates: start: 20210122, end: 20210510
  3. PREDNISONE. [Suspect]
     Active Substance: PREDNISONE
     Indication: FOLLICULAR LYMPHOMA STAGE III
     Dosage: 70 MG
     Route: 048
     Dates: start: 20210123, end: 20210514
  4. CYCLOPHOSPHAMIDE. [Suspect]
     Active Substance: CYCLOPHOSPHAMIDE
     Indication: FOLLICULAR LYMPHOMA STAGE III
     Dosage: 6 CURES, 1290 MG
     Route: 042
     Dates: start: 20210122, end: 20210510
  5. VINCRISTINE (SULFATE DE) [Suspect]
     Active Substance: VINCRISTINE SULFATE
     Indication: FOLLICULAR LYMPHOMA STAGE III
     Dosage: 2 MG
     Route: 042
     Dates: start: 20210122, end: 20210510

REACTIONS (1)
  - Cardiogenic shock [Not Recovered/Not Resolved]

NARRATIVE: CASE EVENT DATE: 20210529
